FAERS Safety Report 10758151 (Version 1)
Quarter: 2015Q1

REPORT INFORMATION
  Report Type: Spontaneous
  Country: CA (occurrence: CA)
  Receive Date: 20150203
  Receipt Date: 20150203
  Transmission Date: 20150721
  Serious: Yes (Life-Threatening)
  Sender: FDA-Public Use
  Company Number: CA-B.I. PHARMACEUTICALS,INC./RIDGEFIELD-2015-BI-05214CN

PATIENT
  Age: 64 Year
  Sex: Male

DRUGS (7)
  1. ATENOLOL BP [Concomitant]
     Indication: PRODUCT USED FOR UNKNOWN INDICATION
     Route: 065
  2. VIRAMUNE [Suspect]
     Active Substance: NEVIRAPINE
     Indication: HIV INFECTION
     Dosage: 100 MG
     Route: 048
  3. ASA [Concomitant]
     Active Substance: ASPIRIN
     Indication: PRODUCT USED FOR UNKNOWN INDICATION
     Route: 065
  4. VIRAMUNE [Suspect]
     Active Substance: NEVIRAPINE
     Dosage: 200 MG
     Route: 048
  5. COMBIVIR [Concomitant]
     Active Substance: LAMIVUDINE\ZIDOVUDINE
     Indication: PRODUCT USED FOR UNKNOWN INDICATION
     Route: 065
  6. ALTACE [Concomitant]
     Active Substance: RAMIPRIL
     Indication: PRODUCT USED FOR UNKNOWN INDICATION
     Route: 065
  7. LIPITOR [Concomitant]
     Active Substance: ATORVASTATIN CALCIUM
     Indication: PRODUCT USED FOR UNKNOWN INDICATION
     Route: 065

REACTIONS (14)
  - Nausea [Unknown]
  - Pyrexia [Unknown]
  - Dehydration [Unknown]
  - Myalgia [Unknown]
  - Erythema [Unknown]
  - Hyperaesthesia [Unknown]
  - Rash generalised [Unknown]
  - Decreased appetite [Unknown]
  - Chromaturia [Unknown]
  - Malaise [Unknown]
  - Somnolence [Unknown]
  - Fatigue [Unknown]
  - Headache [Unknown]
  - Peripheral swelling [Unknown]
